FAERS Safety Report 12387252 (Version 1)
Quarter: 2016Q2

REPORT INFORMATION
  Report Type: Spontaneous
  Country: CA (occurrence: CA)
  Receive Date: 20160519
  Receipt Date: 20160519
  Transmission Date: 20160815
  Serious: Yes (Other)
  Sender: FDA-Public Use
  Company Number: CA-BIOMARINAP-CA-2016-109852

PATIENT
  Age: 22 Year
  Sex: Male
  Weight: 25 kg

DRUGS (4)
  1. TYLENOL [Concomitant]
     Active Substance: ACETAMINOPHEN
     Indication: PREMEDICATION
     Dosage: 325 MG, SINGLE
     Route: 048
  2. VIMIZIM [Suspect]
     Active Substance: ELOSULFASE ALFA
     Indication: MUCOPOLYSACCHARIDOSIS IV
     Dosage: 2 MG/KG, QW
     Route: 042
     Dates: start: 20160408
  3. GRAVOL [Concomitant]
     Active Substance: DIMENHYDRINATE
     Indication: PREMEDICATION
     Dosage: 45 MG, UNK
     Route: 048
  4. REACTINE                           /00884302/ [Concomitant]
     Active Substance: CETIRIZINE HYDROCHLORIDE
     Indication: PREMEDICATION
     Dosage: 5 MG, SINGLE
     Route: 048

REACTIONS (7)
  - Pallor [Unknown]
  - Faeces soft [Unknown]
  - Vomiting [Unknown]
  - Hypotension [Unknown]
  - Feeling hot [Unknown]
  - Nausea [Unknown]
  - Tremor [Unknown]

NARRATIVE: CASE EVENT DATE: 20160516
